FAERS Safety Report 11005367 (Version 1)
Quarter: 2015Q2

REPORT INFORMATION
  Report Type: Spontaneous
  Country: SN (occurrence: SN)
  Receive Date: 20150409
  Receipt Date: 20150409
  Transmission Date: 20150821
  Serious: Yes (Hospitalization, Disabling, Other)
  Sender: FDA-Public Use
  Company Number: PHHY2015SN038689

PATIENT
  Sex: Male

DRUGS (1)
  1. EXFORGE [Suspect]
     Active Substance: AMLODIPINE BESYLATE\VALSARTAN
     Indication: HYPERTENSION
     Dosage: 1 DF (160 VALS, 10 AMLO), QD
     Route: 048
     Dates: start: 201312, end: 201407

REACTIONS (2)
  - Ischaemic stroke [Recovered/Resolved with Sequelae]
  - Hemiparesis [Unknown]
